FAERS Safety Report 10331891 (Version 1)
Quarter: 2014Q3

REPORT INFORMATION
  Report Type: Spontaneous
  Country: ES (occurrence: ES)
  Receive Date: 20140722
  Receipt Date: 20140722
  Transmission Date: 20150326
  Serious: Yes (Hospitalization)
  Sender: FDA-Public Use
  Company Number: ES-TEVA-495345ISR

PATIENT
  Age: 25 Year
  Sex: Male

DRUGS (2)
  1. IBUPROFEN. [Suspect]
     Active Substance: IBUPROFEN
     Indication: SUICIDE ATTEMPT
     Route: 048
  2. IBUPROFEN. [Suspect]
     Active Substance: IBUPROFEN
     Indication: HEADACHE
     Dosage: TOOK TWO PILLS
     Route: 048

REACTIONS (3)
  - Renal failure acute [Recovered/Resolved]
  - Flank pain [Recovered/Resolved]
  - Suicide attempt [Recovered/Resolved]
